FAERS Safety Report 4800235-X (Version None)
Quarter: 2005Q4

REPORT INFORMATION
  Report Type: 
  Country: None (occurrence: None)
  Receive Date: 20051017
  Receipt Date: 20050523
  Transmission Date: 20060501
  Serious: No
  Sender: FDA-Public Use
  Company Number: US-GLAXOSMITHKLINE-A0560330A

PATIENT
  Sex: Female

DRUGS (2)
  1. CEFTIN [Suspect]
     Indication: DRUG USE FOR UNKNOWN INDICATION
  2. CEFTIN [Suspect]

REACTIONS (1)
  - ADVERSE EVENT [None]
